FAERS Safety Report 17869841 (Version 1)
Quarter: 2020Q2

REPORT INFORMATION
  Report Type: Spontaneous
  Country: US (occurrence: US)
  Receive Date: 20200605
  Receipt Date: 20200605
  Transmission Date: 20200714
  Serious: Yes (Death)
  Sender: FDA-Public Use
  Company Number: None

PATIENT
  Age: 45 Year
  Sex: Female

DRUGS (5)
  1. MESALAMINE. [Concomitant]
     Active Substance: MESALAMINE
  2. URSODIOL. [Concomitant]
     Active Substance: URSODIOL
  3. OCTREOTIDE. [Suspect]
     Active Substance: OCTREOTIDE
     Dosage: ?          OTHER DOSE:100MCG/ML;?
     Route: 058
     Dates: start: 20200406
  4. ALACYCLOVIR [Concomitant]
  5. LOSARTAN. [Concomitant]
     Active Substance: LOSARTAN

REACTIONS (1)
  - Death [None]

NARRATIVE: CASE EVENT DATE: 20200510
